FAERS Safety Report 16724998 (Version 4)
Quarter: 2019Q4

REPORT INFORMATION
  Report Type: Spontaneous
  Country: US (occurrence: US)
  Receive Date: 20190821
  Receipt Date: 20191121
  Transmission Date: 20200122
  Serious: Yes (Life-Threatening, Hospitalization, Other)
  Sender: FDA-Public Use
  Company Number: US-CATALYST PHARMACEUTICALS, INC-2019CAT00326

PATIENT
  Age: 91 Year
  Sex: Female
  Weight: 54.42 kg

DRUGS (19)
  1. FIRDAPSE [Suspect]
     Active Substance: AMIFAMPRIDINE
     Dosage: 10 MG, 3X/DAY
     Route: 048
     Dates: start: 2019, end: 2019
  2. METOPROLOL. [Concomitant]
     Active Substance: METOPROLOL
     Dosage: 25 MG, 2X/DAY
  3. D COMPLEX [Concomitant]
     Dosage: UNK, 1X/DAY
  4. AMLODIPINE BESYLATE. [Concomitant]
     Active Substance: AMLODIPINE BESYLATE
     Dosage: 5 MG
  5. FIRDAPSE [Suspect]
     Active Substance: AMIFAMPRIDINE
     Dosage: 10 MG, 3X/DAY
     Route: 048
     Dates: start: 2019
  6. AREDS 2 (COPPER, VITAMIN E, VITAMIN C, ZINC) [Concomitant]
  7. SIMVASTATIN. [Concomitant]
     Active Substance: SIMVASTATIN
     Dosage: 20 MG, 1X/DAY IN THE EVENING
  8. LOVENOX [Concomitant]
     Active Substance: ENOXAPARIN SODIUM
     Dosage: 40 UNK, 1X/DAY
     Dates: end: 201908
  9. N-ACETYL CYSTEINE [Concomitant]
     Active Substance: ACETYLCYSTEINE
  10. METFORMIN [Concomitant]
     Active Substance: METFORMIN HYDROCHLORIDE
     Dosage: 500 MG, 2X/DAY
  11. PEPCID COMPLETE [Concomitant]
     Active Substance: CALCIUM CARBONATE\FAMOTIDINE\MAGNESIUM HYDROXIDE
     Dosage: UNK, 1X/DAY
  12. UNSPECIFIED INSULIN [Concomitant]
     Active Substance: INSULIN NOS
     Dosage: SLIDING SCALE
     Dates: end: 201908
  13. FIRDAPSE [Suspect]
     Active Substance: AMIFAMPRIDINE
     Dosage: 20 MG, 3X/DAY
     Route: 048
     Dates: start: 2019, end: 2019
  14. FIRDAPSE [Suspect]
     Active Substance: AMIFAMPRIDINE
     Dosage: UNK
     Route: 048
     Dates: start: 2019, end: 2019
  15. CALCIUM WITH VITAMIN D [Concomitant]
     Active Substance: CALCIUM\VITAMIN D
     Dosage: 600 MG, 1X/DAY
  16. CLOPIDOGREL [Concomitant]
     Active Substance: CLOPIDOGREL BISULFATE
     Dosage: 75 MG, 1X/DAY
  17. ALBUTEROL. [Concomitant]
     Active Substance: ALBUTEROL
  18. FIRDAPSE [Suspect]
     Active Substance: AMIFAMPRIDINE
     Indication: MYASTHENIC SYNDROME
     Dosage: 10 MG, 3X/DAY (EVERY 5 HOURS WHILE AWAKE)
     Route: 048
     Dates: start: 20190717, end: 2019
  19. OXYBUTYNIN. [Concomitant]
     Active Substance: OXYBUTYNIN CHLORIDE

REACTIONS (22)
  - Seizure [Unknown]
  - Electrolyte imbalance [Recovered/Resolved]
  - Nausea [Recovered/Resolved]
  - Tremor [Unknown]
  - Haematuria [Recovered/Resolved]
  - Hypoxia [Not Recovered/Not Resolved]
  - Loss of consciousness [Recovered/Resolved]
  - Drooling [Unknown]
  - Diarrhoea [Unknown]
  - Headache [Unknown]
  - Myasthenic syndrome [Not Recovered/Not Resolved]
  - Neoplasm malignant [Unknown]
  - Dysuria [Unknown]
  - Vulvovaginal discomfort [Unknown]
  - Asthenia [Recovered/Resolved]
  - Pyrexia [Not Recovered/Not Resolved]
  - Colitis [Unknown]
  - Atrial fibrillation [Recovered/Resolved]
  - Hypertension [Recovered/Resolved]
  - Chills [Unknown]
  - Product dose omission [Recovered/Resolved]
  - Dizziness [Unknown]

NARRATIVE: CASE EVENT DATE: 2019
